FAERS Safety Report 8788091 (Version 2)
Quarter: 2012Q4

REPORT INFORMATION
  Report Type: 
  Country: IL (occurrence: IL)
  Receive Date: 20120914
  Receipt Date: 20121106
  Transmission Date: 20130627
  Serious: Yes (Death, Hospitalization)
  Sender: FDA-Public Use
  Company Number: IL-ELI_LILLY_AND_COMPANY-IL201209002242

PATIENT
  Age: 90 Year
  Sex: Female

DRUGS (10)
  1. FORTEO [Suspect]
     Indication: OSTEOPOROSIS
     Dosage: 20 ug, qd
     Route: 058
     Dates: start: 20110418
  2. DOPICAR [Concomitant]
  3. OMEPRADEX [Concomitant]
  4. FOLIC ACID [Concomitant]
  5. CIPRALEX [Concomitant]
  6. LIPITOR [Concomitant]
  7. VIT D [Concomitant]
  8. NOCTURNO [Concomitant]
  9. COUMADIN [Concomitant]
  10. MULTIVITAMIN [Concomitant]

REACTIONS (4)
  - Death [Fatal]
  - Nasopharyngitis [Not Recovered/Not Resolved]
  - Cough [Not Recovered/Not Resolved]
  - Asthenia [Not Recovered/Not Resolved]
